FAERS Safety Report 7125869-1 (Version None)
Quarter: 2010Q4

REPORT INFORMATION
  Report Type: 
  Country: None (occurrence: None)
  Receive Date: 20101112
  Receipt Date: 20101101
  Transmission Date: 20110411
  Serious: Yes (Death, Hospitalization)
  Sender: FDA-Public Use
  Company Number: 688939

PATIENT
  Age: 60 Year
  Sex: Female
  Weight: 90.7 kg

DRUGS (3)
  1. NIPENT [Suspect]
     Indication: CHRONIC LYMPHOCYTIC LEUKAEMIA
     Dosage: 8 MG, TOTAL DOSE ADMINISTERED THIS COURSE
     Dates: start: 20100830, end: 20100830
  2. CYCLOPHOSPHAMIDE [Suspect]
     Indication: CHRONIC LYMPHOCYTIC LEUKAEMIA
     Dosage: 1200 MG, TOTAL DOSE ADMINISTERED THIS COURSE
     Dates: start: 20100830, end: 20100830
  3. RITUXIMAB [Suspect]
     Indication: CHRONIC LYMPHOCYTIC LEUKAEMIA
     Dosage: 750 MG, TOTAL DOSE ADMINISTERED THIS COURSE
     Dates: start: 20100830, end: 20100830

REACTIONS (23)
  - ACUTE PULMONARY OEDEMA [None]
  - ANAEMIA HAEMOLYTIC AUTOIMMUNE [None]
  - ATELECTASIS [None]
  - BLOOD CREATININE INCREASED [None]
  - BLOOD PRESSURE INCREASED [None]
  - CAPILLARY LEAK SYNDROME [None]
  - CHRONIC LYMPHOCYTIC LEUKAEMIA RECURRENT [None]
  - ELECTROMECHANICAL DISSOCIATION [None]
  - GASTROINTESTINAL STROMAL TUMOUR [None]
  - HEADACHE [None]
  - HEPATOMEGALY [None]
  - LEFT VENTRICULAR HYPERTROPHY [None]
  - LOBAR PNEUMONIA [None]
  - NAUSEA [None]
  - PERICARDIAL EFFUSION [None]
  - PLEURAL EFFUSION [None]
  - PULMONARY CONGESTION [None]
  - RENAL CYST [None]
  - RIB FRACTURE [None]
  - RIGHT VENTRICULAR HYPERTROPHY [None]
  - SPLENOMEGALY [None]
  - STAPHYLOCOCCUS TEST POSITIVE [None]
  - UTERINE POLYP [None]
